FAERS Safety Report 10217597 (Version 2)
Quarter: 2015Q2

REPORT INFORMATION
  Report Type: Report from Study
  Country: US (occurrence: US)
  Receive Date: 20140604
  Receipt Date: 20150402
  Transmission Date: 20150821
  Serious: Yes (Other)
  Sender: FDA-Public Use
  Company Number: US-GILEAD-2014-0104173

PATIENT
  Age: 58 Year
  Sex: Male

DRUGS (3)
  1. ADCIRCA [Concomitant]
     Active Substance: TADALAFIL
  2. OXYGEN. [Concomitant]
     Active Substance: OXYGEN
  3. AMBRISENTAN [Suspect]
     Active Substance: AMBRISENTAN
     Indication: PULMONARY ARTERIAL HYPERTENSION
     Dosage: 5 MG, QD
     Route: 065
     Dates: start: 20140207

REACTIONS (8)
  - Cardiac arrest [Recovering/Resolving]
  - Dyspnoea exertional [Recovering/Resolving]
  - Excoriation [Recovering/Resolving]
  - Oxygen consumption increased [Recovering/Resolving]
  - Respiratory arrest [Recovering/Resolving]
  - Upper limb fracture [Recovering/Resolving]
  - Loss of consciousness [Recovering/Resolving]
  - Syncope [Recovering/Resolving]
